FAERS Safety Report 16211987 (Version 1)
Quarter: 2019Q2

REPORT INFORMATION
  Report Type: Spontaneous
  Country: US (occurrence: US)
  Receive Date: 20190418
  Receipt Date: 20190418
  Transmission Date: 20190711
  Serious: No
  Sender: FDA-Public Use
  Company Number: US-HIKMA PHARMACEUTICALS USA INC.-US-H14001-18-07171

PATIENT
  Sex: Female

DRUGS (1)
  1. CALCITRIOL. [Suspect]
     Active Substance: CALCITRIOL
     Indication: CALCIUM DEFICIENCY
     Route: 048

REACTIONS (1)
  - Abdominal discomfort [Unknown]
